FAERS Safety Report 25895570 (Version 1)
Quarter: 2025Q4

REPORT INFORMATION
  Report Type: Spontaneous
  Country: PR (occurrence: PR)
  Receive Date: 20251008
  Receipt Date: 20251008
  Transmission Date: 20260117
  Serious: No
  Sender: ABBVIE
  Company Number: PR-ABBVIE-6485211

PATIENT
  Age: 50 Year

DRUGS (1)
  1. ELAHERE [Suspect]
     Active Substance: MIRVETUXIMAB SORAVTANSINE-GYNX
     Indication: Ovarian cancer
     Route: 042

REACTIONS (1)
  - Fatigue [Not Recovered/Not Resolved]
